FAERS Safety Report 9006454 (Version 1)
Quarter: 2013Q1

REPORT INFORMATION
  Report Type: Report from Study
  Country: CA (occurrence: CA)
  Receive Date: 20130110
  Receipt Date: 20130110
  Transmission Date: 20140127
  Serious: Yes (Other)
  Sender: FDA-Public Use
  Company Number: CA-JNJFOC-20130101857

PATIENT
  Sex: Male

DRUGS (2)
  1. REMICADE [Suspect]
     Indication: PSORIASIS
     Route: 042
  2. ANTIBIOTICS [Suspect]
     Indication: PNEUMONIA
     Route: 065
     Dates: start: 2012

REACTIONS (2)
  - Pneumonia [Not Recovered/Not Resolved]
  - Palpitations [Not Recovered/Not Resolved]
